FAERS Safety Report 22172322 (Version 1)
Quarter: 2023Q2

REPORT INFORMATION
  Report Type: Spontaneous
  Country: FR (occurrence: FR)
  Receive Date: 20230404
  Receipt Date: 20230404
  Transmission Date: 20230721
  Serious: Yes (Other)
  Sender: FDA-Public Use
  Company Number: FR-AstraZeneca-2022-38923

PATIENT
  Age: 57 Year
  Sex: Male

DRUGS (55)
  1. OXALIPLATIN [Suspect]
     Active Substance: OXALIPLATIN
     Indication: Gastric cancer
     Dosage: 85.0 MG/M2  ON DAYS 1 AND 15 EVERY FOUR WEEKS
     Route: 042
     Dates: start: 20220119, end: 20220119
  2. OXALIPLATIN [Suspect]
     Active Substance: OXALIPLATIN
     Indication: Oesophageal carcinoma
     Dosage: 85.0 MG/M2  ON DAYS 1 AND 15 EVERY FOUR WEEKS
     Route: 042
     Dates: start: 20220202, end: 20220202
  3. OXALIPLATIN [Suspect]
     Active Substance: OXALIPLATIN
     Dosage: 85.0 MG/M2  ON DAYS 1 AND 15 EVERY FOUR WEEKS
     Route: 042
     Dates: start: 20220216, end: 20220216
  4. OXALIPLATIN [Suspect]
     Active Substance: OXALIPLATIN
     Dosage: 85.0 MG/M2  ON DAYS 1 AND 15 EVERY FOUR WEEKS
     Route: 042
     Dates: start: 20220302, end: 20220302
  5. OXALIPLATIN [Suspect]
     Active Substance: OXALIPLATIN
     Dosage: 85.0 MG/M2  ON DAYS 1 AND 15 EVERY FOUR WEEKS
     Route: 042
     Dates: start: 20220721, end: 20220721
  6. OXALIPLATIN [Suspect]
     Active Substance: OXALIPLATIN
     Dosage: 85.0 MG/M2  ON DAYS 1 AND 15 EVERY FOUR WEEKS
     Route: 042
     Dates: start: 20220804, end: 20220804
  7. OXALIPLATIN [Suspect]
     Active Substance: OXALIPLATIN
     Dosage: 85.0 MG/M2  ON DAYS 1 AND 15 EVERY FOUR WEEKS
     Route: 042
     Dates: start: 20220908, end: 20220908
  8. OXALIPLATIN [Suspect]
     Active Substance: OXALIPLATIN
     Dosage: 85.0 MG/M2  ON DAYS 1 AND 15 EVERY FOUR WEEKS
     Route: 042
     Dates: start: 20220923, end: 20220923
  9. FLUOROURACIL [Suspect]
     Active Substance: FLUOROURACIL
     Indication: Gastric cancer
     Dosage: 2600.0 MG/M2  ON DAYS 1 AND 15 EVERY FOUR WEEKS
     Route: 042
     Dates: start: 20220119, end: 20220120
  10. FLUOROURACIL [Suspect]
     Active Substance: FLUOROURACIL
     Indication: Oesophageal carcinoma
     Dosage: 2600.0 MG/M2  ON DAYS 1 AND 15 EVERY FOUR WEEKS
     Route: 042
     Dates: start: 20220202, end: 20220203
  11. FLUOROURACIL [Suspect]
     Active Substance: FLUOROURACIL
     Dosage: 2600.0 MG/M2  ON DAYS 1 AND 15 EVERY FOUR WEEKS
     Route: 042
     Dates: start: 20220216, end: 20220217
  12. FLUOROURACIL [Suspect]
     Active Substance: FLUOROURACIL
     Dosage: 2600.0 MG/M2  ON DAYS 1 AND 15 EVERY FOUR WEEKS
     Route: 042
     Dates: start: 20220302, end: 20220303
  13. FLUOROURACIL [Suspect]
     Active Substance: FLUOROURACIL
     Dosage: 2600.0 MG/M2  ON DAYS 1 AND 15 EVERY FOUR WEEKS
     Route: 042
     Dates: start: 20220721, end: 20220722
  14. FLUOROURACIL [Suspect]
     Active Substance: FLUOROURACIL
     Dosage: 2600.0 MG/M2  ON DAYS 1 AND 15 EVERY FOUR WEEKS
     Route: 042
     Dates: start: 20220804, end: 20220805
  15. FLUOROURACIL [Suspect]
     Active Substance: FLUOROURACIL
     Dosage: 2600.0 MG/M2  ON DAYS 1 AND 15 EVERY FOUR WEEKS
     Route: 042
     Dates: start: 20220908, end: 20220909
  16. FLUOROURACIL [Suspect]
     Active Substance: FLUOROURACIL
     Dosage: 2600.0 MG/M2  ON DAYS 1 AND 15 EVERY FOUR WEEKS
     Route: 042
     Dates: start: 20220923, end: 20220924
  17. DURVALUMAB [Suspect]
     Active Substance: DURVALUMAB
     Indication: Oesophageal carcinoma
     Dosage: FREQ:4 WK;
     Route: 042
     Dates: start: 20220119, end: 20220119
  18. DURVALUMAB [Suspect]
     Active Substance: DURVALUMAB
     Indication: Gastric cancer
     Dosage: FREQ:4 WK;
     Route: 042
     Dates: start: 20220216, end: 20220216
  19. DURVALUMAB [Suspect]
     Active Substance: DURVALUMAB
     Dosage: FREQ:4 WK;
     Route: 042
     Dates: start: 20220721, end: 20220721
  20. DURVALUMAB [Suspect]
     Active Substance: DURVALUMAB
     Dosage: FREQ:4 WK;
     Route: 042
     Dates: start: 20221006, end: 20221006
  21. DURVALUMAB [Suspect]
     Active Substance: DURVALUMAB
     Dosage: FREQ:4 WK;
     Route: 042
     Dates: start: 20220908, end: 20220908
  22. ORAL NUTRITIONAL SUPPLEMENTS [Concomitant]
     Indication: Malnutrition
     Dosage: THREE TIMES A DAY
     Route: 048
     Dates: start: 20220216
  23. ALFUZOSIN [Concomitant]
     Active Substance: ALFUZOSIN
     Indication: Benign prostatic hyperplasia
     Route: 048
     Dates: start: 20220216
  24. ACETAMINOPHEN [Concomitant]
     Active Substance: ACETAMINOPHEN
     Indication: Pain
     Route: 048
     Dates: start: 20220228, end: 20220302
  25. DOCETAXEL [Concomitant]
     Active Substance: DOCETAXEL
     Indication: Gastric cancer
     Dosage: 50.0 MG/M2  ON DAYS 1 AND 15 EVERY FOUR WEEKS
     Route: 042
     Dates: start: 20220216, end: 20220216
  26. DOCETAXEL [Concomitant]
     Active Substance: DOCETAXEL
     Dosage: 50.0 MG/M2  ON DAYS 1 AND 15 EVERY FOUR WEEKS
     Route: 042
     Dates: start: 20220202, end: 20220202
  27. DOCETAXEL [Concomitant]
     Active Substance: DOCETAXEL
     Dosage: 50.0 MG/M2  ON DAYS 1 AND 15 EVERY FOUR WEEKS
     Route: 042
     Dates: start: 20220302, end: 20220302
  28. DOCETAXEL [Concomitant]
     Active Substance: DOCETAXEL
     Dosage: 50.0 MG/M2  ON DAYS 1 AND 15 EVERY FOUR WEEKS
     Route: 042
     Dates: start: 20220804, end: 20220804
  29. DOCETAXEL [Concomitant]
     Active Substance: DOCETAXEL
     Dosage: 50.0 MG/M2  ON DAYS 1 AND 15 EVERY FOUR WEEKS
     Route: 042
     Dates: start: 20220119, end: 20220119
  30. DOCETAXEL [Concomitant]
     Active Substance: DOCETAXEL
     Dosage: 50.0 MG/M2  ON DAYS 1 AND 15 EVERY FOUR WEEKS
     Route: 042
     Dates: start: 20220923, end: 20220923
  31. DOCETAXEL [Concomitant]
     Active Substance: DOCETAXEL
     Dosage: 50.0 MG/M2  ON DAYS 1 AND 15 EVERY FOUR WEEKS
     Route: 042
     Dates: start: 20220721, end: 20220721
  32. DOCETAXEL [Concomitant]
     Active Substance: DOCETAXEL
     Dosage: 50.0 MG/M2  ON DAYS 1 AND 15 EVERY FOUR WEEKS
     Route: 042
     Dates: start: 20220908, end: 20220908
  33. NEULASTA [Concomitant]
     Active Substance: PEGFILGRASTIM
     Indication: Neutropenia
     Dosage: FREQ:2 WK;
     Route: 058
     Dates: start: 20220203
  34. GLYCERIN\MINERAL OIL\PETROLATUM [Concomitant]
     Active Substance: GLYCERIN\MINERAL OIL\PETROLATUM
     Indication: Xerosis
     Dosage: 1.0 APPLICATION  AS REQUIRED
     Route: 003
     Dates: start: 20220202
  35. SMECTA [Concomitant]
     Active Substance: MONTMORILLONITE
     Indication: Diarrhoea
     Dosage: AS REQUIRED
     Route: 048
     Dates: start: 20220119
  36. TADALAFIL [Concomitant]
     Active Substance: TADALAFIL
     Indication: Benign prostatic hyperplasia
     Route: 048
  37. EMLA [Concomitant]
     Active Substance: LIDOCAINE\PRILOCAINE
     Indication: Dyspepsia
     Route: 062
     Dates: start: 20220119
  38. ACETAMINOPHEN\CODEINE PHOSPHATE [Concomitant]
     Active Substance: ACETAMINOPHEN\CODEINE PHOSPHATE
     Indication: Pain
     Route: 048
  39. METHYLPREDNISOLONE [Concomitant]
     Active Substance: METHYLPREDNISOLONE
     Indication: Prophylaxis of nausea and vomiting
     Route: 042
     Dates: start: 20220216, end: 20220216
  40. METHYLPREDNISOLONE [Concomitant]
     Active Substance: METHYLPREDNISOLONE
     Dosage: 80 MG, SINGLE
     Route: 042
     Dates: start: 20220302, end: 20220302
  41. LEUCOVORIN [Concomitant]
     Active Substance: LEUCOVORIN
     Indication: Gastric cancer
     Dosage: 200.0 MG/M2  ON DAYS 1 AND 15 EVERY FOUR WEEKS
     Route: 042
     Dates: start: 20220216, end: 20220216
  42. LEUCOVORIN [Concomitant]
     Active Substance: LEUCOVORIN
     Dosage: 200.0 MG/M2  ON DAYS 1 AND 15 EVERY FOUR WEEKS
     Route: 042
     Dates: start: 20220923, end: 20220923
  43. LEUCOVORIN [Concomitant]
     Active Substance: LEUCOVORIN
     Dosage: 200.0 MG/M2  ON DAYS 1 AND 15 EVERY FOUR WEEKS
     Route: 042
     Dates: start: 20220119, end: 20220119
  44. LEUCOVORIN [Concomitant]
     Active Substance: LEUCOVORIN
     Dosage: 200.0 MG/M2  ON DAYS 1 AND 15 EVERY FOUR WEEKS
     Route: 042
     Dates: start: 20220804, end: 20220804
  45. LEUCOVORIN [Concomitant]
     Active Substance: LEUCOVORIN
     Dosage: 200.0 MG/M2  ON DAYS 1 AND 15 EVERY FOUR WEEKS
     Route: 042
     Dates: start: 20220202, end: 20220202
  46. LEUCOVORIN [Concomitant]
     Active Substance: LEUCOVORIN
     Dosage: 200.0 MG/M2  ON DAYS 1 AND 15 EVERY FOUR WEEKS
     Route: 042
     Dates: start: 20220302, end: 20220302
  47. LEUCOVORIN [Concomitant]
     Active Substance: LEUCOVORIN
     Dosage: 200.0 MG/M2  ON DAYS 1 AND 15 EVERY FOUR WEEKS
     Route: 042
     Dates: start: 20220721, end: 20220721
  48. LEUCOVORIN [Concomitant]
     Active Substance: LEUCOVORIN
     Dosage: 200.0 MG/M2  ON DAYS 1 AND 15 EVERY FOUR WEEKS
     Route: 042
     Dates: start: 20220908, end: 20220908
  49. IMODIUM [Concomitant]
     Active Substance: LOPERAMIDE HYDROCHLORIDE
     Indication: Diarrhoea
     Dosage: AS REQUIRED
     Route: 048
     Dates: start: 20220119
  50. METHYLPREDNISOLONE [Concomitant]
     Active Substance: METHYLPREDNISOLONE
     Indication: Prophylaxis of nausea and vomiting
     Dosage: 60.0 MG  3 DAYS AFTER EACH CHEMOTHERAPY INFUSION
     Route: 048
     Dates: start: 20220119, end: 20220925
  51. PRIMPERAN [Concomitant]
     Active Substance: METOCLOPRAMIDE HYDROCHLORIDE
     Indication: Prophylaxis of nausea and vomiting
     Route: 048
     Dates: start: 20220119
  52. EMEND [Concomitant]
     Active Substance: APREPITANT
     Indication: Prophylaxis of nausea and vomiting
     Dosage: 1.0 DF  3 DAYS AFTER EACH CHEMOTHERAPY INFUSION
     Route: 048
     Dates: start: 20220119, end: 20220925
  53. ONDANSETRON [Concomitant]
     Active Substance: ONDANSETRON
     Indication: Prophylaxis of nausea and vomiting
     Route: 042
     Dates: start: 20220216, end: 20220216
  54. ONDANSETRON [Concomitant]
     Active Substance: ONDANSETRON
     Route: 042
     Dates: start: 20220302, end: 20220302
  55. LAMALINE (ACETAMINOPHEN\CAFFEINE\OPIUM) [Concomitant]
     Active Substance: ACETAMINOPHEN\CAFFEINE\OPIUM
     Indication: Pain
     Dosage: AS REQUIRED
     Route: 048

REACTIONS (1)
  - Staphylococcal infection [Recovered/Resolved]

NARRATIVE: CASE EVENT DATE: 20220318
